FAERS Safety Report 23264211 (Version 1)
Quarter: 2023Q4

REPORT INFORMATION
  Report Type: Spontaneous
  Country: AR (occurrence: AR)
  Receive Date: 20231205
  Receipt Date: 20231205
  Transmission Date: 20240110
  Serious: Yes (Hospitalization)
  Sender: FDA-Public Use
  Company Number: AR-PFIZER INC-PV202300186276

PATIENT
  Age: 76 Year
  Sex: Male

DRUGS (10)
  1. INLYTA [Suspect]
     Active Substance: AXITINIB
     Indication: Renal cancer
     Dosage: UNK, CYCLIC, UNKNOWN DOSE, 4 WEEKS AND 2 WEEKS OFF
  2. INLYTA [Suspect]
     Active Substance: AXITINIB
     Dosage: 10 MG, CYCLIC (5MG 2X PER DAY, 14 DAYS INTAKE AND 14 DAYS REST)
     Dates: start: 202003
  3. AVELUMAB [Suspect]
     Active Substance: AVELUMAB
     Indication: Renal cancer
     Dosage: UNK (DOSE AMOUNT AND FREQUENCY UNSPECIFIED)
  4. BAVENCIO [Suspect]
     Active Substance: AVELUMAB
     Indication: Renal cancer
     Dosage: UNK (DOSE AMOUNT AND FREQUENCY UNSPCIFIED)
     Route: 048
  5. LEVOTHYROXINE [Concomitant]
     Active Substance: LEVOTHYROXINE
     Dosage: UNK
     Dates: start: 202012
  6. FENOFIBRATE [Concomitant]
     Active Substance: FENOFIBRATE
     Dosage: UNK (200)
     Dates: start: 202103
  7. ROSUVASTATIN [Concomitant]
     Active Substance: ROSUVASTATIN
     Dosage: UNK (10)
     Dates: start: 202103
  8. GLIOTEN [ENALAPRIL MALEATE] [Concomitant]
     Dosage: UNK
     Dates: start: 1989
  9. ARTERIOSAN [Concomitant]
     Dosage: UNK
     Dates: start: 1989
  10. ALLOPURINOL [Concomitant]
     Active Substance: ALLOPURINOL
     Dosage: UNK
     Dates: start: 1989

REACTIONS (6)
  - Malaise [Recovered/Resolved]
  - Gastrointestinal pain [Unknown]
  - Abdominal distension [Unknown]
  - Diarrhoea [Unknown]
  - Dizziness [Recovered/Resolved]
  - Off label use [Unknown]

NARRATIVE: CASE EVENT DATE: 20231108
